FAERS Safety Report 7765243-8 (Version None)
Quarter: 2011Q3

REPORT INFORMATION
  Report Type: 
  Country: None (occurrence: None)
  Receive Date: 20110921
  Receipt Date: 20110913
  Transmission Date: 20111222
  Serious: Yes (Hospitalization)
  Sender: FDA-Public Use
  Company Number: US-GLAXOSMITHKLINE-B0698097A

PATIENT
  Age: 56 Year
  Sex: Male

DRUGS (2)
  1. AVANDAMET [Suspect]
     Indication: DIABETES MELLITUS
     Dosage: 4MG TWICE PER DAY
     Route: 048
     Dates: start: 20040504, end: 20060817
  2. AVANDIA [Suspect]
     Indication: DIABETES MELLITUS
     Dosage: 4MG TWICE PER DAY
     Route: 048
     Dates: start: 20040504, end: 20060817

REACTIONS (8)
  - MYOCARDIAL INFARCTION [None]
  - ANEURYSM [None]
  - DECREASED APPETITE [None]
  - CARDIAC FAILURE [None]
  - CORONARY ARTERY BYPASS [None]
  - FATIGUE [None]
  - WEIGHT DECREASED [None]
  - SWELLING [None]
